FAERS Safety Report 6924311-0 (Version None)
Quarter: 2010Q3

REPORT INFORMATION
  Report Type: 
  Country: None (occurrence: None)
  Receive Date: 20100811
  Receipt Date: 20100811
  Transmission Date: 20110219
  Serious: Yes (Other)
  Sender: FDA-Public Use
  Company Number: None

PATIENT
  Age: 56 Year
  Sex: Female
  Weight: 95.2 kg

DRUGS (1)
  1. LENALIDOMIDE [Suspect]
     Indication: LYMPHOMA
     Dosage: 15 MG DAILY ORAL
     Route: 048
     Dates: start: 20100302, end: 20100615

REACTIONS (1)
  - NEUTROPHIL COUNT DECREASED [None]
